FAERS Safety Report 19202328 (Version 2)
Quarter: 2021Q3

REPORT INFORMATION
  Report Type: Report from Study
  Country: JP (occurrence: JP)
  Receive Date: 20210430
  Receipt Date: 20210701
  Transmission Date: 20211014
  Serious: Yes (Death, Hospitalization, Other)
  Sender: FDA-Public Use
  Company Number: JP-PFIZER INC-2021440998

PATIENT
  Age: 75 Year
  Sex: Female
  Weight: 62 kg

DRUGS (43)
  1. MAGMITT [Concomitant]
     Active Substance: MAGNESIUM OXIDE
     Dosage: UNK
     Dates: start: 20200826, end: 20200907
  2. NICARDIPINE HYDROCHLORIDE. [Concomitant]
     Active Substance: NICARDIPINE HYDROCHLORIDE
     Dosage: UNK
     Dates: start: 20200827, end: 20200827
  3. ROCURONIUM BROMIDE. [Concomitant]
     Active Substance: ROCURONIUM BROMIDE
     Dosage: UNK
     Dates: start: 20200822, end: 20200825
  4. GARENOXACIN MESILATE MONOHYDRATE [Concomitant]
     Active Substance: GARENOXACIN MESYLATE
     Dosage: UNK
     Dates: start: 20200812, end: 20200818
  5. REMDESIVIR. [Suspect]
     Active Substance: REMDESIVIR
     Indication: COVID-19
     Dosage: 200 MG, DAILY (ONCE A DAY)
     Route: 041
     Dates: start: 20200821, end: 20200821
  6. REMDESIVIR. [Suspect]
     Active Substance: REMDESIVIR
     Dosage: 100 MG, DAILY (ONCE A DAY)
     Route: 041
     Dates: start: 20200822, end: 20200825
  7. AZITHROMYCIN ANHYDROUS. [Concomitant]
     Active Substance: AZITHROMYCIN ANHYDROUS
     Dosage: UNK
     Dates: start: 20200819, end: 20200820
  8. PRECEDEX [Concomitant]
     Active Substance: DEXMEDETOMIDINE HYDROCHLORIDE
     Dosage: UNK
     Dates: start: 20200825
  9. MIDAZOLAM. [Concomitant]
     Active Substance: MIDAZOLAM
     Dosage: UNK
     Dates: start: 20200822, end: 20200822
  10. ATARAX?P [Suspect]
     Active Substance: HYDROXYZINE HYDROCHLORIDE
     Indication: DELIRIUM
     Dosage: UNK
  11. ROZEREM [Concomitant]
     Active Substance: RAMELTEON
     Dosage: UNK
     Dates: start: 20200824, end: 20200908
  12. TRAZODONE HYDROCHLORIDE. [Concomitant]
     Active Substance: TRAZODONE HYDROCHLORIDE
     Dosage: UNK
     Dates: start: 20200827, end: 20200917
  13. INSULIN HUMAN [Concomitant]
     Active Substance: INSULIN HUMAN
     Dosage: UNK
     Dates: start: 20200819
  14. BRIDION [Concomitant]
     Active Substance: SUGAMMADEX
     Dosage: UNK
     Dates: start: 20200822, end: 20200822
  15. COUGHCODE N [Concomitant]
     Active Substance: ACETAMINOPHEN\BROMISOVAL\DIHYDROCODEINE PHOSPHATE\DIPHENHYDRAMINE SALICYLATE\DYPHYLLINE\METHYLEPHEDRINE HYDROCHLORIDE, (+/-)-
     Dosage: UNK
     Dates: start: 20200812, end: 20200819
  16. CARBOCISTEINE [Concomitant]
     Active Substance: CARBOCYSTEINE
     Dosage: UNK
     Dates: start: 20200812, end: 20200818
  17. SERENACE [Concomitant]
     Active Substance: HALOPERIDOL
  18. RISPERIDONE. [Concomitant]
     Active Substance: RISPERIDONE
  19. CEFTRIAXONE SODIUM. [Concomitant]
     Active Substance: CEFTRIAXONE SODIUM
     Dosage: UNK
     Dates: start: 20200819, end: 20200821
  20. BELSOMRA [Concomitant]
     Active Substance: SUVOREXANT
     Dosage: UNK
     Dates: start: 20200819, end: 20200908
  21. NOREPINEPHRINE. [Concomitant]
     Active Substance: NOREPINEPHRINE
     Dosage: UNK
     Dates: start: 20200822, end: 20200912
  22. PROPOFOL. [Concomitant]
     Active Substance: PROPOFOL
     Dosage: UNK
     Dates: start: 20200822
  23. ACETAMINOPHEN. [Concomitant]
     Active Substance: ACETAMINOPHEN
     Dosage: UNK
     Dates: start: 20200812
  24. BISONO [Concomitant]
     Active Substance: BISOPROLOL
  25. GLYCEROL [Concomitant]
     Active Substance: GLYCERIN
  26. DEXART [Concomitant]
     Active Substance: DEXAMETHASONE SODIUM PHOSPHATE
     Dosage: UNK
     Dates: start: 20200821, end: 20200830
  27. FENTANYL. [Concomitant]
     Active Substance: FENTANYL
     Dosage: UNK
     Dates: start: 20200822, end: 20200909
  28. DAIKENCHUTO [Concomitant]
     Active Substance: HERBALS
     Dosage: UNK
     Dates: start: 20200825, end: 20200827
  29. LANSOPRAZOLE. [Concomitant]
     Active Substance: LANSOPRAZOLE
     Dosage: UNK
     Dates: start: 20200821
  30. ALVESCO [Concomitant]
     Active Substance: CICLESONIDE
     Dosage: UNK
     Dates: start: 20200819, end: 20200821
  31. MIRTAZAPINE. [Concomitant]
     Active Substance: MIRTAZAPINE
     Dosage: UNK
     Dates: start: 20200828, end: 20200916
  32. CALONAL [Concomitant]
     Active Substance: ACETAMINOPHEN
  33. SENNOSIDE A+B [Concomitant]
     Active Substance: SENNOSIDES A AND B
     Dosage: UNK
     Dates: start: 20200821, end: 20200824
  34. SODIUM PICOSULFATE [Concomitant]
     Active Substance: SODIUM PICOSULFATE
     Dosage: UNK
     Dates: start: 20200828, end: 20200828
  35. RESTAMIN KOWA [Concomitant]
  36. MIYA?BM [Concomitant]
     Active Substance: CLOSTRIDIUM BUTYRICUM SPORES STRAIN M-55
     Dosage: UNK
     Dates: start: 20200823, end: 20200827
  37. TANDOSPIRONE CITRATE [Concomitant]
     Active Substance: TANDOSPIRONE CITRATE
  38. BISOLVON A [Concomitant]
  39. BROTIZOLAM [Concomitant]
     Active Substance: BROTIZOLAM
  40. OMEPRAZOLE. [Concomitant]
     Active Substance: OMEPRAZOLE
     Dosage: UNK
     Dates: start: 20200823, end: 20200823
  41. FLUNITRAZEPAM [Concomitant]
     Active Substance: FLUNITRAZEPAM
  42. METOCLOPRAMIDE [METOCLOPRAMIDE HYDROCHLORIDE] [Concomitant]
     Active Substance: METOCLOPRAMIDE HYDROCHLORIDE
  43. HEPARIN CALCIUM [Concomitant]
     Active Substance: HEPARIN CALCIUM
     Dosage: UNK
     Dates: start: 20200821, end: 20200902

REACTIONS (7)
  - Supraventricular tachycardia [Recovered/Resolved]
  - Pruritus [Recovered/Resolved]
  - Pneumonia staphylococcal [Recovered/Resolved]
  - COVID-19 [Fatal]
  - Sepsis [Fatal]
  - Delirium [Fatal]
  - Off label use [Unknown]

NARRATIVE: CASE EVENT DATE: 20200829
